FAERS Safety Report 20408391 (Version 2)
Quarter: 2022Q1

REPORT INFORMATION
  Report Type: Spontaneous
  Country: US (occurrence: US)
  Receive Date: 20220201
  Receipt Date: 20220211
  Transmission Date: 20220424
  Serious: Yes (Hospitalization, Other)
  Sender: FDA-Public Use
  Company Number: US-PHARMING-PHAUS2022000067

PATIENT

DRUGS (1)
  1. RUCONEST [Suspect]
     Active Substance: HUMAN C1-ESTERASE INHIBITOR
     Indication: Hereditary angioedema
     Dosage: 2745 IU, AS NEEDED
     Route: 042
     Dates: start: 20200804

REACTIONS (4)
  - Acute myocardial infarction [Unknown]
  - Pericardial effusion [Unknown]
  - COVID-19 [Recovered/Resolved]
  - Therapeutic product effect delayed [Unknown]
